FAERS Safety Report 11604045 (Version 4)
Quarter: 2015Q4

REPORT INFORMATION
  Report Type: Spontaneous
  Country: JP (occurrence: JP)
  Receive Date: 20151007
  Receipt Date: 20151224
  Transmission Date: 20160304
  Serious: Yes (Hospitalization)
  Sender: FDA-Public Use
  Company Number: JP-ROCHE-1643010

PATIENT
  Age: 14 Year
  Sex: Female
  Weight: 50 kg

DRUGS (8)
  1. XOLAIR [Suspect]
     Active Substance: OMALIZUMAB
     Route: 058
     Dates: start: 20120427
  2. XOLAIR [Suspect]
     Active Substance: OMALIZUMAB
     Route: 058
     Dates: start: 20120521
  3. XOLAIR [Suspect]
     Active Substance: OMALIZUMAB
     Route: 058
     Dates: start: 20121003
  4. XOLAIR [Suspect]
     Active Substance: OMALIZUMAB
     Route: 058
     Dates: start: 20130813, end: 20130813
  5. FLUTIDE [Concomitant]
     Active Substance: FLUTICASONE PROPIONATE
     Route: 065
  6. XOLAIR [Suspect]
     Active Substance: OMALIZUMAB
     Indication: ASTHMA
     Route: 058
     Dates: start: 20110511
  7. XOLAIR [Suspect]
     Active Substance: OMALIZUMAB
     Route: 058
     Dates: start: 20120509
  8. CALONAL [Concomitant]
     Active Substance: ACETAMINOPHEN
     Route: 065
     Dates: start: 20150209

REACTIONS (16)
  - Blood lactate dehydrogenase increased [Recovered/Resolved]
  - Gamma-glutamyltransferase decreased [Recovered/Resolved]
  - Lymphadenitis [Recovered/Resolved]
  - Vomiting [Not Recovered/Not Resolved]
  - Blood creatinine increased [Recovered/Resolved]
  - Nausea [Not Recovered/Not Resolved]
  - Blood creatine phosphokinase decreased [Unknown]
  - Blood alkaline phosphatase increased [Unknown]
  - Blood urea decreased [Recovered/Resolved]
  - Complement factor increased [Recovered/Resolved]
  - Peritonsillar abscess [Recovered/Resolved]
  - Pyrexia [Not Recovered/Not Resolved]
  - Blood sodium decreased [Recovered/Resolved]
  - Lymphadenopathy [Unknown]
  - Collagen disorder [Not Recovered/Not Resolved]
  - Red blood cell sedimentation rate increased [Recovered/Resolved]

NARRATIVE: CASE EVENT DATE: 20111102
